FAERS Safety Report 5478779-X (Version None)
Quarter: 2007Q4

REPORT INFORMATION
  Report Type: 
  Country: None (occurrence: None)
  Receive Date: 20071002
  Receipt Date: 20070921
  Transmission Date: 20080405
  Serious: Yes (Other)
  Sender: FDA-Public Use
  Company Number: SPV1-2007-04248

PATIENT
  Age: 4 Year
  Sex: Female
  Weight: 17.9 kg

DRUGS (1)
  1. DAYTRANA [Suspect]
     Indication: ATTENTION DEFICIT/HYPERACTIVITY DISORDER
     Dosage: 15 MG, 1X/DAY; QD, TRANSDERMAL
     Route: 062
     Dates: start: 20070903, end: 20070913

REACTIONS (3)
  - CONVULSION [None]
  - OFF LABEL USE [None]
  - PSYCHOMOTOR HYPERACTIVITY [None]
